FAERS Safety Report 5026080-0 (Version None)
Quarter: 2006Q2

REPORT INFORMATION
  Report Type: 
  Country: None (occurrence: None)
  Receive Date: 20060612
  Receipt Date: 20060612
  Transmission Date: 20061013
  Serious: Yes (Hospitalization)
  Sender: FDA-Public Use
  Company Number: None

PATIENT
  Age: 59 Year
  Sex: Female
  Weight: 192 kg

DRUGS (2)
  1. TRACLEER [Suspect]
     Indication: PULMONARY HYPERTENSION
     Dosage: 125 MG PO BID
     Route: 048
  2. FUROSEMIDE [Suspect]
     Indication: PULMONARY HYPERTENSION
     Dosage: [SEVERAL MONTHS OR MORE]

REACTIONS (4)
  - HEPATIC CIRRHOSIS [None]
  - HYPERAMMONAEMIA [None]
  - MENTAL STATUS CHANGES [None]
  - OBESITY [None]
